FAERS Safety Report 20253368 (Version 1)
Quarter: 2021Q4

REPORT INFORMATION
  Report Type: Spontaneous
  Country: US (occurrence: US)
  Receive Date: 20211230
  Receipt Date: 20211230
  Transmission Date: 20220304
  Serious: No
  Sender: FDA-Public Use
  Company Number: US-SUN PHARMACEUTICAL INDUSTRIES LTD-2021R1-319015

PATIENT

DRUGS (2)
  1. HALOG [Suspect]
     Active Substance: HALCINONIDE
     Indication: Product used for unknown indication
     Dosage: UNK
     Route: 061
  2. HALOG [Suspect]
     Active Substance: HALCINONIDE
     Indication: Product used for unknown indication
     Dosage: UNK
     Route: 065

REACTIONS (1)
  - Drug hypersensitivity [Unknown]
